FAERS Safety Report 9632378 (Version 4)
Quarter: 2013Q4

REPORT INFORMATION
  Report Type: Spontaneous
  Country: BE (occurrence: BE)
  Receive Date: 20131018
  Receipt Date: 20131202
  Transmission Date: 20140711
  Serious: Yes (Hospitalization, Other)
  Sender: FDA-Public Use
  Company Number: BE-BAYER-2013-126178

PATIENT
  Age: 42 Year
  Sex: Female

DRUGS (8)
  1. BETAFERON [Suspect]
     Indication: MULTIPLE SCLEROSIS
     Dosage: UNK
     Dates: start: 201306, end: 20131017
  2. ASAFLOW [Concomitant]
  3. L-THYROXINE [Concomitant]
  4. MOVICOL [Concomitant]
  5. PANTOPRAZOLE [Concomitant]
     Route: 042
  6. TRADONAL [Concomitant]
  7. CLEXANE [Concomitant]
  8. LITICAN [Concomitant]

REACTIONS (7)
  - Abdominal pain upper [Recovering/Resolving]
  - Malaise [Recovering/Resolving]
  - Ventricular fibrillation [Recovering/Resolving]
  - Cardiac arrest [Recovering/Resolving]
  - Incorrect dose administered [None]
  - Drug intolerance [None]
  - Cardiomyopathy [None]
